FAERS Safety Report 5216508-5 (Version None)
Quarter: 2006Q4

REPORT INFORMATION
  Report Type: 
  Country: None (occurrence: None)
  Receive Date: 20061130
  Receipt Date: 20060803
  Transmission Date: 20070319
  Serious: Yes (Hospitalization)
  Sender: FDA-Public Use
  Company Number: US200608003804

PATIENT
  Age: 56 Year
  Sex: Male
  Weight: 115.6 kg

DRUGS (5)
  1. ZYPREXA [Suspect]
     Indication: DEPRESSION
     Dosage: 2.5 MG
     Dates: start: 19980801, end: 20051101
  2. ARIPIPRAZOLE [Concomitant]
  3. THIOTHIXENE [Concomitant]
  4. LITHIUM CARBONATE [Concomitant]
  5. NEFAZODONE HCL [Concomitant]

REACTIONS (3)
  - CHEST PAIN [None]
  - DIABETES MELLITUS [None]
  - METABOLIC DISORDER [None]
